FAERS Safety Report 9654763 (Version 1)
Quarter: 2013Q4

REPORT INFORMATION
  Report Type: Spontaneous
  Country: US (occurrence: None)
  Receive Date: 20131015
  Receipt Date: 20131015
  Transmission Date: 20140711
  Serious: Yes (Death, Hospitalization)
  Sender: FDA-Public Use
  Company Number: 2013038276

PATIENT
  Age: 68 Year
  Sex: Male

DRUGS (9)
  1. PRIVIGEN (IMMUNE GLOBULIN INTRAVENOUS (HUMAN) 10% LIQUID) [Suspect]
     Indication: SECONDARY IMMUNODEFICIENCY
     Dosage: 10 G, INFUSION RATE MIN. 0.33 ML/MIN MAX. 2.2 MINS.
     Dates: start: 20121018, end: 20121018
  2. COTRIM [Concomitant]
  3. ANTINEOPLASTIC AND IMMUNOMODULATING AGENTS [Concomitant]
  4. DEXAMETHASONE [Concomitant]
  5. PANTOZOL (PANTOPRAZOLE SODIUM) [Concomitant]
  6. ASS (ACETYLSALICYLIC ACID) [Concomitant]
  7. LEVETIRACETAM [Concomitant]
  8. TRAMADOL [Concomitant]
  9. IBUPROFEN [Concomitant]

REACTIONS (10)
  - Multi-organ failure [None]
  - Pulmonary sepsis [None]
  - Septic shock [None]
  - Renal failure [None]
  - General physical health deterioration [None]
  - Hypotension [None]
  - Dyspnoea [None]
  - Pancytopenia [None]
  - Hypercoagulation [None]
  - Lactic acidosis [None]
